FAERS Safety Report 9166323 (Version 1)
Quarter: 2013Q1

REPORT INFORMATION
  Report Type: Spontaneous
  Country: US (occurrence: US)
  Receive Date: 20130315
  Receipt Date: 20130315
  Transmission Date: 20140127
  Serious: Yes (Death, Other)
  Sender: FDA-Public Use
  Company Number: US-ASTRAZENECA-2013SE16853

PATIENT
  Age: 40 Year
  Sex: Male

DRUGS (1)
  1. BRILINTA [Suspect]
     Dosage: 180 MG ONCE
     Route: 048
     Dates: start: 201302, end: 201302

REACTIONS (2)
  - Thrombosis in device [Fatal]
  - Vomiting [Recovered/Resolved]
